FAERS Safety Report 20029631 (Version 3)
Quarter: 2021Q4

REPORT INFORMATION
  Report Type: Report from Study
  Country: US (occurrence: US)
  Receive Date: 20211103
  Receipt Date: 20211125
  Transmission Date: 20220303
  Serious: Yes (Other)
  Sender: FDA-Public Use
  Company Number: US-NOVARTISPH-NVSC2020US360473

PATIENT
  Sex: Male
  Weight: 82.1 kg

DRUGS (6)
  1. LUTATHERA [Suspect]
     Active Substance: LUTETIUM OXODOTREOTIDE LU-177
     Indication: Neuroendocrine tumour
     Dosage: UNK
     Route: 065
  2. LOSARTAN POTASSIUM [Concomitant]
     Active Substance: LOSARTAN POTASSIUM
     Indication: Product used for unknown indication
     Dosage: 50 MG, QD
     Route: 065
  3. TEMOZOLOMIDE [Concomitant]
     Active Substance: TEMOZOLOMIDE
     Indication: Product used for unknown indication
     Dosage: 3 DF, QD (100 MG) (FOR 5 DAYS)
     Route: 048
  4. INSULIN NOS [Concomitant]
     Active Substance: INSULIN NOS
     Indication: Product used for unknown indication
     Dosage: PUMP
     Route: 065
  5. PERCOCET [Concomitant]
     Active Substance: ACETAMINOPHEN\OXYCODONE HYDROCHLORIDE
     Indication: Product used for unknown indication
     Dosage: PRN 5/325
     Route: 065
  6. CAPECITABINE [Concomitant]
     Active Substance: CAPECITABINE
     Indication: Product used for unknown indication
     Dosage: 500 MG, BID (2 TABLETS FOR 14 DAYS, THEN 14 DAYS REST)
     Route: 048

REACTIONS (9)
  - Osteonecrosis [Unknown]
  - Nocturia [Unknown]
  - Abdominal discomfort [Unknown]
  - Dyspepsia [Unknown]
  - Flatulence [Unknown]
  - Weight decreased [Unknown]
  - Abdominal pain upper [Unknown]
  - Fatigue [Unknown]
  - Abdominal symptom [Unknown]
